FAERS Safety Report 7760088-7 (Version None)
Quarter: 2011Q3

REPORT INFORMATION
  Report Type: 
  Country: None (occurrence: None)
  Receive Date: 20110919
  Receipt Date: 20110913
  Transmission Date: 20111222
  Serious: Yes (Other)
  Sender: FDA-Public Use
  Company Number: CHPA2011GB11688

PATIENT
  Sex: Female

DRUGS (6)
  1. PROPRANOLOL HCL [Concomitant]
     Indication: PANIC ATTACK
     Dosage: UNK, UNK
     Route: 065
     Dates: start: 20110501
  2. NICOTINE [Suspect]
     Dosage: UNK, UNK
  3. NICOTINE [Suspect]
     Indication: SMOKING CESSATION THERAPY
     Dosage: 40 - 48 MG, QD
     Dates: start: 19930101
  4. NICOTINE [Suspect]
     Dosage: 24 MG, QD
     Dates: start: 19850101, end: 19860101
  5. NICOTINE [Suspect]
     Dosage: UNK, UNK
     Dates: start: 19910101, end: 19910101
  6. TETRALYSAL [Concomitant]
     Indication: ROSACEA
     Dosage: UNK, UNK
     Route: 065
     Dates: start: 20110801

REACTIONS (7)
  - INCORRECT DRUG ADMINISTRATION DURATION [None]
  - OVERDOSE [None]
  - DRUG DEPENDENCE [None]
  - MATERNAL EXPOSURE DURING PREGNANCY [None]
  - TREATMENT NONCOMPLIANCE [None]
  - NORMAL NEWBORN [None]
  - EXPOSURE DURING BREAST FEEDING [None]
